FAERS Safety Report 14092224 (Version 8)
Quarter: 2019Q3

REPORT INFORMATION
  Report Type: Report from Study
  Country: DE (occurrence: DE)
  Receive Date: 20171016
  Receipt Date: 20190729
  Transmission Date: 20191004
  Serious: Yes (Other)
  Sender: FDA-Public Use
  Company Number: PHHY2017DE149386

PATIENT
  Age: 63 Year
  Sex: Female
  Weight: 109 kg

DRUGS (26)
  1. FOLIC ACID. [Concomitant]
     Active Substance: FOLIC ACID
     Indication: SUPPLEMENTATION THERAPY
     Dosage: 5 MG, QW
     Route: 048
     Dates: start: 19910701
  2. COSENTYX [Suspect]
     Active Substance: SECUKINUMAB
     Dosage: 300 MG, PER APPLICAION, QW
     Route: 065
     Dates: start: 20170623
  3. METHOTREXATE. [Concomitant]
     Active Substance: METHOTREXATE
     Indication: ANKYLOSING SPONDYLITIS
     Dosage: 15 MG, QW
     Route: 058
     Dates: start: 19910701
  4. HYDROMORPHONE [Concomitant]
     Active Substance: HYDROMORPHONE
     Indication: PAIN
     Dosage: 8 MG, TID
     Route: 048
     Dates: start: 20120424
  5. PANTOPRAZOLE [Concomitant]
     Active Substance: PANTOPRAZOLE
     Indication: PROPHYLAXIS AGAINST GASTROINTESTINAL ULCER
     Dosage: 20 MG, BID
     Route: 048
     Dates: start: 20120424
  6. FORMOTOP [Concomitant]
     Active Substance: FORMOTEROL FUMARATE
     Dosage: 2 DF, QD
     Route: 055
  7. VIGANTOLETTEN [Concomitant]
     Active Substance: CHOLECALCIFEROL
     Dosage: 1 DF, QD
     Route: 048
  8. COSENTYX [Suspect]
     Active Substance: SECUKINUMAB
     Dosage: 300 MG, PER APPLICAION, QW
     Route: 065
     Dates: start: 20170728
  9. ATROVENT [Concomitant]
     Active Substance: IPRATROPIUM BROMIDE
     Indication: OBSTRUCTIVE AIRWAYS DISORDER
     Dosage: 2 DF, QD
     Route: 055
     Dates: start: 20160422
  10. NOVOPULMON [Concomitant]
     Active Substance: BUDESONIDE
     Indication: OBSTRUCTIVE AIRWAYS DISORDER
     Dosage: 200 UG, BID (ONE PUFF)
     Route: 055
     Dates: start: 20150130
  11. COSENTYX [Suspect]
     Active Substance: SECUKINUMAB
     Indication: ANKYLOSING SPONDYLITIS
     Dosage: 300 MG, PER APPLICAION, QW
     Route: 065
     Dates: start: 20170602
  12. ENABETA COMP [Concomitant]
     Active Substance: ENALAPRIL MALEATE\HYDROCHLOROTHIAZIDE
     Indication: HYPERTENSION
     Dosage: 2 DF, BID
     Route: 048
     Dates: start: 20120424
  13. NOVOPULMON [Concomitant]
     Active Substance: BUDESONIDE
     Dosage: 2 DF, QD
     Route: 055
  14. FORMOTOP [Concomitant]
     Active Substance: FORMOTEROL FUMARATE
     Indication: OBSTRUCTIVE AIRWAYS DISORDER
     Dosage: 6 UG, BID (ONE PUFF)
     Route: 055
     Dates: start: 20160122
  15. VIGANTOLETTEN [Concomitant]
     Active Substance: CHOLECALCIFEROL
     Indication: VITAMIN D DEFICIENCY
     Dosage: 1000 IU, QD
     Route: 048
     Dates: start: 20151130
  16. COSENTYX [Suspect]
     Active Substance: SECUKINUMAB
     Dosage: 300 MG, PER APPLICAION, QW
     Route: 065
     Dates: start: 20170609
  17. SOTAHEXAL [Concomitant]
     Active Substance: SOTALOL
     Indication: ARRHYTHMIA
  18. LANTUS [Concomitant]
     Active Substance: INSULIN GLARGINE
     Indication: DIABETES MELLITUS
     Dosage: UNK IU, UNK
     Route: 058
     Dates: start: 20120424
  19. COSENTYX [Suspect]
     Active Substance: SECUKINUMAB
     Dosage: 300 MG, PER APPLICAION, QW
     Route: 065
     Dates: start: 20170616
  20. COSENTYX [Suspect]
     Active Substance: SECUKINUMAB
     Dosage: 300 MG, PER APPLICAION, QW
     Route: 065
     Dates: start: 20170630
  21. SOTAHEXAL [Concomitant]
     Active Substance: SOTALOL
     Indication: ANAMNESTIC REACTION
     Dosage: 80 MG, BID
     Route: 048
     Dates: start: 20120424
  22. SOTAHEXAL [Concomitant]
     Active Substance: SOTALOL
     Indication: ANAMNESTIC REACTION
  23. COSENTYX [Suspect]
     Active Substance: SECUKINUMAB
     Dosage: 300 MG, PER APPLICAION, QW
     Route: 065
     Dates: start: 20170818, end: 20170818
  24. SOTAHEXAL [Concomitant]
     Active Substance: SOTALOL
     Indication: ARRHYTHMIA
  25. SALBUTAMOL [Concomitant]
     Active Substance: ALBUTEROL
     Indication: OBSTRUCTIVE AIRWAYS DISORDER
     Dosage: UNK UNK, PRN
     Route: 055
     Dates: start: 20150130
  26. MOMETASON [Concomitant]
     Active Substance: MOMETASONE FUROATE
     Indication: OBSTRUCTIVE AIRWAYS DISORDER
     Dosage: UNK UNK, PRN
     Route: 045
     Dates: start: 20150130

REACTIONS (4)
  - Inflammation [Recovered/Resolved]
  - Respiratory tract infection [Recovered/Resolved]
  - Haemophilus infection [Recovered/Resolved]
  - Necrosis [Recovered/Resolved]

NARRATIVE: CASE EVENT DATE: 20170815
